FAERS Safety Report 8858569 (Version 1)
Quarter: 2012Q4

REPORT INFORMATION
  Report Type: 
  Country: US (occurrence: US)
  Receive Date: 20121024
  Receipt Date: 20121024
  Transmission Date: 20130627
  Serious: Yes (Hospitalization)
  Sender: FDA-Public Use
  Company Number: US-ROCHE-1135877

PATIENT
  Sex: Female

DRUGS (1)
  1. RAPTIVA [Suspect]
     Indication: PSORIASIS
     Route: 065
     Dates: start: 200403, end: 200903

REACTIONS (3)
  - Pneumonia [Unknown]
  - Nephrolithiasis [Unknown]
  - Incorrect dose administered [Unknown]
